FAERS Safety Report 16577115 (Version 2)
Quarter: 2019Q3

REPORT INFORMATION
  Report Type: Spontaneous
  Country: FR (occurrence: FR)
  Receive Date: 20190716
  Receipt Date: 20190910
  Transmission Date: 20191004
  Serious: Yes (Disabling, Other)
  Sender: FDA-Public Use
  Company Number: FR-SA-2019SA188844

PATIENT
  Age: 74 Year
  Sex: Female
  Weight: 91 kg

DRUGS (1)
  1. PRALUENT [Suspect]
     Active Substance: ALIROCUMAB
     Indication: TYPE IIA HYPERLIPIDAEMIA
     Dosage: 300 MG, QM
     Route: 058
     Dates: start: 20190107, end: 20190403

REACTIONS (3)
  - Polyarthritis [Recovered/Resolved]
  - Arthralgia [Recovered/Resolved]
  - SLE arthritis [Recovered/Resolved]

NARRATIVE: CASE EVENT DATE: 201903
